FAERS Safety Report 21027641 (Version 10)
Quarter: 2023Q1

REPORT INFORMATION
  Report Type: Spontaneous
  Country: US (occurrence: US)
  Receive Date: 20220630
  Receipt Date: 20230323
  Transmission Date: 20230418
  Serious: Yes (Other)
  Sender: FDA-Public Use
  Company Number: US-PFIZER INC-PV202200012158

PATIENT
  Age: 89 Year
  Sex: Female
  Weight: 61.69 kg

DRUGS (4)
  1. IBRANCE [Suspect]
     Active Substance: PALBOCICLIB
     Indication: Breast cancer metastatic
     Dosage: 75 MG
  2. IBRANCE [Suspect]
     Active Substance: PALBOCICLIB
     Indication: Metastases to breast
     Dosage: 75 MG, CYCLIC (TAKE 1 TABLET BY MOUTH DAILY FOR 14 DAYS ON 14 DAYS OFF FOR 28 DAY CYCLE)
     Route: 048
  3. TYLENOL [Concomitant]
     Active Substance: ACETAMINOPHEN
     Dosage: UNK
  4. GABAPENTIN [Concomitant]
     Active Substance: GABAPENTIN
     Dosage: UNK

REACTIONS (6)
  - Osteomyelitis [Unknown]
  - Deafness [Not Recovered/Not Resolved]
  - Blindness [Unknown]
  - Hypoacusis [Unknown]
  - Asthenia [Not Recovered/Not Resolved]
  - Fatigue [Unknown]
